FAERS Safety Report 9955939 (Version 1)
Quarter: 2014Q1

REPORT INFORMATION
  Report Type: Report from Study
  Country: US (occurrence: US)
  Receive Date: 20140304
  Receipt Date: 20140304
  Transmission Date: 20141002
  Serious: No
  Sender: FDA-Public Use
  Company Number: US-ABBVIE-13P-163-1084190-00

PATIENT
  Age: 57 Year
  Sex: Female

DRUGS (19)
  1. HUMIRA [Suspect]
     Indication: RHEUMATOID ARTHRITIS
  2. PREDNISONE [Concomitant]
     Indication: PRODUCT USED FOR UNKNOWN INDICATION
  3. PLAQUENIL [Concomitant]
     Indication: RHEUMATOID ARTHRITIS
     Dosage: 200 MG DAILY
  4. CARTIA [Concomitant]
     Indication: BLOOD PRESSURE
     Dosage: 240 MG DAILY
  5. VASOTEC [Concomitant]
     Indication: BLOOD PRESSURE
     Dosage: 10 MG AT HOUR OF SLEEP
  6. ATENOLOL [Concomitant]
     Indication: HEART RATE INCREASED
     Dosage: 25 MG DAILY
  7. NEXIUM [Concomitant]
     Indication: GASTROOESOPHAGEAL REFLUX DISEASE
     Dosage: 40 MG DAILY
  8. ADVAIR DISKUS [Concomitant]
     Indication: ASTHMA
     Dosage: 250/50
  9. ALBUTEROL INHALER [Concomitant]
     Indication: ASTHMA
     Dosage: 4 TIMES A DAY AS NEEDED
     Route: 055
  10. PATANASE [Concomitant]
     Indication: HYPERSENSITIVITY
     Dosage: 2 SPRAYS EACH NOSTRIL TWICE A DAY
     Route: 045
  11. PATADAY [Concomitant]
     Indication: EYE ALLERGY
     Dosage: 1 DROP EACH EYE TWICE A DAY
  12. LOTEMAX [Concomitant]
     Indication: INFLAMMATION
     Dosage: 1 DROP EACH EYE 4 TIMES A DAY - AS NEEDED
  13. ORACEA [Concomitant]
     Indication: ROSACEA
  14. VICODIN [Concomitant]
     Indication: PRODUCT USED FOR UNKNOWN INDICATION
     Dosage: 5/500 MG 1 TWICE A DAY AS NEEDED
  15. VITAMIN B12 [Concomitant]
     Indication: PRODUCT USED FOR UNKNOWN INDICATION
     Route: 050
  16. FOLIC ACID [Concomitant]
     Indication: PRODUCT USED FOR UNKNOWN INDICATION
     Dosage: 1 MG DAILY
  17. VITAMIN D [Concomitant]
     Indication: PRODUCT USED FOR UNKNOWN INDICATION
  18. TUMS [Concomitant]
     Indication: BLOOD CALCIUM
     Dosage: 2 TUMS DAILY
  19. EYE DROPS [Concomitant]
     Indication: PRODUCT USED FOR UNKNOWN INDICATION

REACTIONS (2)
  - Vision blurred [Not Recovered/Not Resolved]
  - Oropharyngeal pain [Not Recovered/Not Resolved]
